FAERS Safety Report 8301245-0 (Version None)
Quarter: 2012Q2

REPORT INFORMATION
  Report Type: 
  Country: None (occurrence: None)
  Receive Date: 20120420
  Receipt Date: 20120420
  Transmission Date: 20120825
  Serious: Yes (Other)
  Sender: FDA-Public Use
  Company Number: None

PATIENT
  Age: 23 Year
  Sex: Male
  Weight: 77.11 kg

DRUGS (1)
  1. LARIAM [Suspect]
     Indication: MALARIA PROPHYLAXIS
     Dosage: 250MG
     Route: 048
     Dates: start: 20100901, end: 20110810

REACTIONS (1)
  - GRAND MAL CONVULSION [None]
